FAERS Safety Report 8229732-4 (Version None)
Quarter: 2012Q1

REPORT INFORMATION
  Report Type: 
  Country: None (occurrence: None)
  Receive Date: 20120322
  Receipt Date: 20120314
  Transmission Date: 20120608
  Serious: Yes (Hospitalization)
  Sender: FDA-Public Use
  Company Number: FR-MERCK-1203USA01985

PATIENT
  Age: 70 Year
  Sex: Female

DRUGS (4)
  1. BROMAZEPAM [Concomitant]
     Route: 065
  2. SINEMET [Suspect]
     Indication: PARKINSONISM
     Route: 048
     Dates: end: 20110312
  3. LERCANIDIPINE [Concomitant]
     Route: 065
  4. PROPRANOLOL [Concomitant]
     Route: 065

REACTIONS (1)
  - CONFUSIONAL STATE [None]
